FAERS Safety Report 6126558-2 (Version None)
Quarter: 2009Q1

REPORT INFORMATION
  Report Type: 
  Country: None (occurrence: None)
  Receive Date: 20090320
  Receipt Date: 20090223
  Transmission Date: 20090719
  Serious: Yes (Hospitalization)
  Sender: FDA-Public Use
  Company Number: DE-PFIZER INC-2008067673

PATIENT

DRUGS (7)
  1. SUNITINIB MALATE [Suspect]
     Indication: RENAL CELL CARCINOMA
     Dosage: 50 MG, 1X/DAY
     Route: 048
     Dates: start: 20080121, end: 20080620
  2. ZOMETA [Concomitant]
     Dosage: UNK
     Dates: start: 20061116
  3. ALLOPURINOL [Concomitant]
     Dosage: 150 MG, UNK
     Dates: start: 20070621
  4. QUERTO [Concomitant]
     Dosage: 12.5 MG, UNK
     Dates: start: 20060907
  5. VESDIL [Concomitant]
     Dosage: 5 MG, UNK
     Dates: start: 20060101
  6. ASPIRIN [Concomitant]
     Dosage: 100 MG, UNK
     Dates: start: 20051205
  7. SANDOCAL-D [Concomitant]
     Dosage: 450/500MG
     Dates: start: 20061116

REACTIONS (5)
  - ANAEMIA [None]
  - GASTRITIS [None]
  - OESOPHAGITIS [None]
  - PAIN [None]
  - PSYCHOTIC DISORDER DUE TO A GENERAL MEDICAL CONDITION [None]
